FAERS Safety Report 6169406-7 (Version None)
Quarter: 2009Q2

REPORT INFORMATION
  Report Type: 
  Country: None (occurrence: None)
  Receive Date: 20090424
  Receipt Date: 20090408
  Transmission Date: 20091009
  Serious: Yes (Hospitalization, Other)
  Sender: FDA-Public Use
  Company Number: 2009040082

PATIENT

DRUGS (9)
  1. TORSEMIDE [Suspect]
  2. SAXAGLIPTIN [Suspect]
     Indication: TYPE 2 DIABETES MELLITUS
     Dosage: (2.5 MG),ORAL
     Route: 048
     Dates: end: 20090214
  3. LISINOPRIL [Suspect]
  4. FOSINOPRIL SODIUM [Suspect]
  5. NEBIVOLOL HCL [Suspect]
  6. DOXAZOSIN MESYLATE [Suspect]
  7. CARMEN [Suspect]
  8. INSUMAN COMB 25 [Concomitant]
  9. ASPIRIN [Concomitant]

REACTIONS (15)
  - ABDOMINAL PAIN UPPER [None]
  - BLOOD CREATININE INCREASED [None]
  - BLOOD UREA INCREASED [None]
  - BUNDLE BRANCH BLOCK LEFT [None]
  - C-REACTIVE PROTEIN INCREASED [None]
  - CARDIAC FAILURE [None]
  - DISEASE PROGRESSION [None]
  - DIZZINESS [None]
  - LOSS OF CONSCIOUSNESS [None]
  - ORTHOSTATIC HYPOTENSION [None]
  - PLEURAL EFFUSION [None]
  - PNEUMONIA [None]
  - PULMONARY CONGESTION [None]
  - PULMONARY OEDEMA [None]
  - QRS AXIS ABNORMAL [None]
